FAERS Safety Report 8500355-2 (Version None)
Quarter: 2012Q3

REPORT INFORMATION
  Report Type: 
  Country: None (occurrence: None)
  Receive Date: 20120705
  Receipt Date: 20120705
  Transmission Date: 20120928
  Serious: Yes (Hospitalization)
  Sender: FDA-Public Use
  Company Number: None

PATIENT
  Age: 44 Year
  Sex: Female
  Weight: 60.3284 kg

DRUGS (1)
  1. ZYRTEC [Suspect]
     Indication: FOOD ALLERGY
     Dosage: 10MG DAILY PO
     Route: 048
     Dates: start: 20081201, end: 20120402

REACTIONS (10)
  - PALPITATIONS [None]
  - DRY EYE [None]
  - WITHDRAWAL SYNDROME [None]
  - DIZZINESS [None]
  - VISUAL IMPAIRMENT [None]
  - PRURITUS GENERALISED [None]
  - FATIGUE [None]
  - ALOPECIA [None]
  - SINUS HEADACHE [None]
  - HEADACHE [None]
